FAERS Safety Report 18904604 (Version 1)
Quarter: 2021Q1

REPORT INFORMATION
  Report Type: Spontaneous
  Country: AU (occurrence: AU)
  Receive Date: 20210217
  Receipt Date: 20210217
  Transmission Date: 20210420
  Serious: Yes (Hospitalization, Other)
  Sender: FDA-Public Use
  Company Number: AU-OTSUKA-2021_005009

PATIENT
  Age: 19 Year
  Sex: Male

DRUGS (8)
  1. METFORMIN [Concomitant]
     Active Substance: METFORMIN HYDROCHLORIDE
     Indication: PRODUCT USED FOR UNKNOWN INDICATION
     Dosage: 2 G, QD
     Route: 065
  2. OLANZAPINE. [Concomitant]
     Active Substance: OLANZAPINE
     Indication: PRODUCT USED FOR UNKNOWN INDICATION
     Dosage: 5 MG, QD
     Route: 065
  3. ABILIFY MAINTENA [Suspect]
     Active Substance: ARIPIPRAZOLE
     Indication: SCHIZOPHRENIA
     Dosage: 400 MG, QM
     Route: 030
     Dates: start: 202009
  4. CLOPIXOL (DECANOATE) [Suspect]
     Active Substance: ZUCLOPENTHIXOL DECANOATE
     Indication: SCHIZOPHRENIA
     Dosage: 300 MG, BIW
     Route: 030
  5. ABILIFY MAINTENA [Suspect]
     Active Substance: ARIPIPRAZOLE
     Dosage: 400 MG, QM
     Route: 030
     Dates: start: 20210113
  6. ABILIFY MAINTENA [Suspect]
     Active Substance: ARIPIPRAZOLE
     Dosage: 400 MG, UNK
     Route: 030
     Dates: start: 20210131
  7. OLANZAPINE. [Concomitant]
     Active Substance: OLANZAPINE
     Dosage: 10 MG, QD
     Route: 065
  8. CLOPIXOL (DECANOATE) [Suspect]
     Active Substance: ZUCLOPENTHIXOL DECANOATE
     Dosage: 300 MG, BIW
     Route: 030
     Dates: start: 20210131

REACTIONS (3)
  - Hospitalisation [Unknown]
  - Extra dose administered [Unknown]
  - Product administration error [Unknown]

NARRATIVE: CASE EVENT DATE: 20210131
